FAERS Safety Report 4446044-5 (Version None)
Quarter: 2004Q3

REPORT INFORMATION
  Report Type: 
  Country: None (occurrence: None)
  Receive Date: 20040910
  Receipt Date: 20040831
  Transmission Date: 20050211
  Serious: Yes (Hospitalization)
  Sender: FDA-Public Use
  Company Number: BE-GLAXOSMITHKLINE-B0344157A

PATIENT
  Age: 72 Year
  Sex: Female
  Weight: 55.5 kg

DRUGS (3)
  1. ROPINIROLE [Suspect]
     Indication: PARKINSON'S DISEASE
     Dosage: 2MG PER DAY
     Route: 048
     Dates: start: 20040824
  2. COMTAN [Concomitant]
     Indication: PARKINSON'S DISEASE
     Dosage: 200MG FOUR TIMES PER DAY
     Route: 048
     Dates: start: 19930101
  3. SINEMET [Concomitant]
     Indication: PARKINSON'S DISEASE
     Dosage: 125MG FOUR TIMES PER DAY
     Route: 048

REACTIONS (1)
  - IMMOBILE [None]
